FAERS Safety Report 14755688 (Version 21)
Quarter: 2020Q2

REPORT INFORMATION
  Report Type: Report from Study
  Country: GB (occurrence: GB)
  Receive Date: 20180413
  Receipt Date: 20200512
  Transmission Date: 20200713
  Serious: Yes (Death, Hospitalization, Other)
  Sender: FDA-Public Use
  Company Number: GB-BRISTOL-MYERS SQUIBB COMPANY-BMS-2018-032945

PATIENT
  Age: 68 Year
  Sex: Female
  Weight: 79.9 kg

DRUGS (19)
  1. PARACETAMOL [Concomitant]
     Active Substance: ACETAMINOPHEN
     Indication: PRODUCT USED FOR UNKNOWN INDICATION
     Dosage: 1 GRAM, PER NEEDED
     Route: 048
     Dates: start: 2014
  2. RANITIDINE. [Concomitant]
     Active Substance: RANITIDINE
     Indication: PRODUCT USED FOR UNKNOWN INDICATION
     Dosage: 50 MILLIGRAM, Q8H
     Route: 042
     Dates: start: 20180407, end: 20180409
  3. VITAMIN K [PHYTOMENADIONE] [Concomitant]
     Indication: PRODUCT USED FOR UNKNOWN INDICATION
     Dosage: 10 MILLIGRAM, QD
     Route: 048
     Dates: start: 20180406, end: 20180407
  4. PROBIOTIC [BIFIDOBACTERIUM INFANTIS;LACTOBACILLUS ACIDOPHILUS] [Concomitant]
     Indication: WEIGHT INCREASED
     Dosage: SACHET DAILY
     Route: 048
     Dates: start: 20180330, end: 20190624
  5. METHYLPREDNISOLONE. [Concomitant]
     Active Substance: METHYLPREDNISOLONE
     Indication: PRODUCT USED FOR UNKNOWN INDICATION
     Dosage: UNK
     Route: 042
     Dates: start: 20180406, end: 20180406
  6. ONDANSETRON [Concomitant]
     Active Substance: ONDANSETRON
     Indication: PRODUCT USED FOR UNKNOWN INDICATION
     Dosage: 4 MILLIGRAM, QD
     Route: 048
     Dates: start: 20180409, end: 20180414
  7. PREDNISOLONE. [Concomitant]
     Active Substance: PREDNISOLONE
     Indication: PROPHYLAXIS
     Dosage: 20 MILLIGRAM, QD
     Route: 048
     Dates: start: 20180426, end: 20180428
  8. PREDNISOLONE. [Concomitant]
     Active Substance: PREDNISOLONE
     Indication: PRODUCT USED FOR UNKNOWN INDICATION
     Dosage: 15 MILLIGRAM, QD
     Route: 048
     Dates: start: 20180428, end: 20190624
  9. FRESUBIN ORIGINAL [Concomitant]
     Indication: PRODUCT USED FOR UNKNOWN INDICATION
     Dosage: 1 LITER, QD
     Route: 042
     Dates: start: 20180410, end: 20180410
  10. IPILIMUMAB [Suspect]
     Active Substance: IPILIMUMAB
     Indication: MALIGNANT MELANOMA
     Dosage: 1 DOSAGE FORM, Q3WK
     Route: 065
     Dates: start: 20180125, end: 20190626
  11. HYDROCORTISONE. [Concomitant]
     Active Substance: HYDROCORTISONE
     Indication: PROPHYLAXIS
     Dosage: 30 MILLIGRAM, QD
     Route: 042
     Dates: start: 20180429, end: 20180430
  12. DALTEPARIN [Concomitant]
     Active Substance: DALTEPARIN
     Indication: DEEP VEIN THROMBOSIS
     Dosage: 5000 UNIT, QD
     Route: 030
     Dates: start: 20180331, end: 20180406
  13. PARACETAMOL [Concomitant]
     Active Substance: ACETAMINOPHEN
     Indication: PRODUCT USED FOR UNKNOWN INDICATION
     Dosage: 1000 MILLIGRAM, QD
     Route: 042
     Dates: start: 20180401, end: 20190624
  14. METHYLPREDNISOLONE SODIUM SUCCINATE. [Concomitant]
     Active Substance: METHYLPREDNISOLONE SODIUM SUCCINATE
     Indication: PRODUCT USED FOR UNKNOWN INDICATION
     Dosage: 500 MILLIGRAM, QD
     Route: 042
     Dates: start: 20180407, end: 20180421
  15. PHOSPHATE [PHOSPHORIC ACID SODIUM] [Concomitant]
     Active Substance: SODIUM PHOSPHATE
     Indication: PRODUCT USED FOR UNKNOWN INDICATION
     Dosage: 50 MILLILITER, QD
     Route: 048
     Dates: start: 20180408, end: 20180409
  16. NIVOLUMAB [Suspect]
     Active Substance: NIVOLUMAB
     Indication: MALIGNANT MELANOMA
     Dosage: 1 DOSAGE FORM, Q3WK
     Route: 065
     Dates: start: 20180125, end: 20190626
  17. DALTEPARIN [Concomitant]
     Active Substance: DALTEPARIN
     Indication: PULMONARY EMBOLISM
     Dosage: 5000 INTERNATIONAL UNIT, QD
     Route: 030
     Dates: start: 20180411, end: 20180522
  18. MYCOPHENOLATE MOFETIL. [Concomitant]
     Active Substance: MYCOPHENOLATE MOFETIL
     Indication: PRODUCT USED FOR UNKNOWN INDICATION
     Dosage: UNK
     Route: 042
     Dates: start: 20180408, end: 20180509
  19. METANIUM [TITANIUM DIOXIDE;TITANIUM PEROXIDE;TITANIUM SALICYLATE;TITAN [Concomitant]
     Indication: PRODUCT USED FOR UNKNOWN INDICATION
     Dosage: 1 DOSAGE FORM, PER NEEDED
     Route: 061
     Dates: start: 20180419, end: 20190624

REACTIONS (16)
  - Nausea [Unknown]
  - Hypotension [Recovered/Resolved]
  - Aspartate aminotransferase increased [Unknown]
  - Decreased appetite [Recovered/Resolved]
  - Dyspepsia [Unknown]
  - Malignant neoplasm progression [Fatal]
  - Rash [Unknown]
  - Sepsis [Unknown]
  - Alanine aminotransferase increased [Recovered/Resolved]
  - International normalised ratio increased [Unknown]
  - Systemic inflammatory response syndrome [Recovered/Resolved]
  - Blood magnesium decreased [Unknown]
  - Secretion discharge [Unknown]
  - Acidosis [Unknown]
  - Blood phosphorus decreased [Unknown]
  - Candida infection [Unknown]

NARRATIVE: CASE EVENT DATE: 20180329
